FAERS Safety Report 5801640-5 (Version None)
Quarter: 2008Q3

REPORT INFORMATION
  Report Type: 
  Country: None (occurrence: None)
  Receive Date: 20080707
  Receipt Date: 20080627
  Transmission Date: 20090109
  Serious: Yes (Other)
  Sender: FDA-Public Use
  Company Number: A0736099A

PATIENT
  Sex: Male

DRUGS (6)
  1. WELLBUTRIN [Suspect]
     Indication: DEPRESSION
     Route: 048
     Dates: start: 20031001, end: 20070101
  2. XANAX [Suspect]
     Indication: DEPRESSION
     Route: 065
     Dates: start: 20031001, end: 20070101
  3. SEROQUEL [Suspect]
     Indication: DEPRESSION
     Route: 065
     Dates: start: 20031001, end: 20070101
  4. LEXAPRO [Suspect]
     Indication: DEPRESSION
     Route: 065
     Dates: start: 20031001, end: 20060101
  5. RESTORIL [Suspect]
     Indication: DEPRESSION
     Route: 065
     Dates: start: 20031001, end: 20070101
  6. CYMBALTA [Suspect]
     Indication: DEPRESSION
     Route: 065
     Dates: start: 20031001, end: 20070101

REACTIONS (31)
  - ANXIETY [None]
  - BLOOD CHOLESTEROL ABNORMAL [None]
  - BLOOD PRESSURE INCREASED [None]
  - BLOOD TRIGLYCERIDES ABNORMAL [None]
  - BRUXISM [None]
  - CONFUSIONAL STATE [None]
  - CONVULSION [None]
  - DEPRESSION [None]
  - DRUG DEPENDENCE [None]
  - DYSKINESIA [None]
  - FEELING ABNORMAL [None]
  - HALLUCINATION [None]
  - HEADACHE [None]
  - HYPERHIDROSIS [None]
  - INSOMNIA [None]
  - INTENTIONAL OVERDOSE [None]
  - NIGHTMARE [None]
  - PAIN [None]
  - PERFORMANCE STATUS DECREASED [None]
  - RENAL FAILURE [None]
  - ROAD TRAFFIC ACCIDENT [None]
  - SCREAMING [None]
  - SLEEP APNOEA SYNDROME [None]
  - SLEEP DISORDER [None]
  - STRESS [None]
  - SUICIDAL IDEATION [None]
  - SUICIDE ATTEMPT [None]
  - TARDIVE DYSKINESIA [None]
  - THYROID DISORDER [None]
  - WEIGHT DECREASED [None]
  - WITHDRAWAL SYNDROME [None]
